FAERS Safety Report 25509133 (Version 2)
Quarter: 2025Q4

REPORT INFORMATION
  Report Type: Spontaneous
  Country: US (occurrence: US)
  Receive Date: 20250703
  Receipt Date: 20251211
  Transmission Date: 20260117
  Serious: Yes (Hospitalization, Other)
  Sender: ELI LILLY AND COMPANY
  Company Number: US-ELI_LILLY_AND_COMPANY-US202507001951

PATIENT
  Age: 45 Year
  Sex: Female

DRUGS (54)
  1. TRULICITY [Suspect]
     Active Substance: DULAGLUTIDE
     Indication: Type 2 diabetes mellitus
     Dosage: UNK UNK, UNKNOWN
     Route: 065
     Dates: start: 202001
  2. TRULICITY [Suspect]
     Active Substance: DULAGLUTIDE
     Indication: Weight control
     Dosage: 3 MG, BID
     Route: 065
     Dates: start: 20220722, end: 20221104
  3. MOUNJARO [Suspect]
     Active Substance: TIRZEPATIDE
     Indication: Type 2 diabetes mellitus
     Dosage: UNK UNK, UNKNOWN
     Route: 065
     Dates: start: 20230607, end: 20240415
  4. MOUNJARO [Suspect]
     Active Substance: TIRZEPATIDE
     Indication: Weight control
  5. OZEMPIC [Suspect]
     Active Substance: SEMAGLUTIDE
     Indication: Product used for unknown indication
     Dosage: UNK UNK, UNKNOWN
     Route: 065
     Dates: start: 20201104, end: 20220411
  6. AIMOVIG [Concomitant]
     Active Substance: ERENUMAB-AOOE
     Indication: Migraine
     Dosage: UNK
     Dates: start: 20231006
  7. ALBUTEROL SULFATE [Concomitant]
     Active Substance: ALBUTEROL SULFATE
     Indication: Chronic obstructive pulmonary disease
     Dosage: UNK
     Dates: start: 20230228
  8. AMITRIPTYLINE [Concomitant]
     Active Substance: AMITRIPTYLINE
     Indication: Depression
     Dosage: UNK
     Dates: start: 20220721
  9. AMITRIPTYLINE [Concomitant]
     Active Substance: AMITRIPTYLINE
     Indication: Neuralgia
  10. AMITRIPTYLINE [Concomitant]
     Active Substance: AMITRIPTYLINE
     Indication: Migraine
  11. ARIPIPRAZOLE [Concomitant]
     Active Substance: ARIPIPRAZOLE
     Indication: Schizophrenia
     Dosage: UNK
     Dates: start: 20240423
  12. ARIPIPRAZOLE [Concomitant]
     Active Substance: ARIPIPRAZOLE
     Indication: Bipolar disorder
  13. ARIPIPRAZOLE [Concomitant]
     Active Substance: ARIPIPRAZOLE
     Indication: Depression
  14. ATORVASTATIN [Concomitant]
     Active Substance: ATORVASTATIN
     Indication: Blood cholesterol increased
     Dosage: UNK
     Dates: start: 20230324
  15. ATORVASTATIN [Concomitant]
     Active Substance: ATORVASTATIN
     Indication: Cardiovascular disorder
  16. BACLOFEN [Concomitant]
     Active Substance: BACLOFEN
     Indication: Muscle spasms
     Dosage: UNK
  17. BACLOFEN [Concomitant]
     Active Substance: BACLOFEN
     Indication: Muscle spasticity
  18. CETIRIZINE [Concomitant]
     Active Substance: CETIRIZINE HYDROCHLORIDE
     Indication: Hypersensitivity
     Dosage: UNK
     Dates: start: 20220812
  19. CETIRIZINE [Concomitant]
     Active Substance: CETIRIZINE HYDROCHLORIDE
     Indication: Seasonal allergy
  20. CHLORTHALIDONE [Concomitant]
     Active Substance: CHLORTHALIDONE
     Indication: Hypertension
     Dosage: UNK
     Dates: start: 20221201, end: 20230518
  21. CHLORTHALIDONE [Concomitant]
     Active Substance: CHLORTHALIDONE
     Indication: Fluid retention
  22. CYCLOBENZAPRINE [Concomitant]
     Active Substance: CYCLOBENZAPRINE
     Indication: Muscle spasms
     Dosage: UNK
     Dates: start: 20220721
  23. DULOXETINE [Concomitant]
     Active Substance: DULOXETINE
     Indication: Depression
     Dosage: UNK
     Dates: start: 20221201
  24. DULOXETINE [Concomitant]
     Active Substance: DULOXETINE
     Indication: Anxiety
  25. DULOXETINE [Concomitant]
     Active Substance: DULOXETINE
     Indication: Fibromyalgia
  26. DULOXETINE [Concomitant]
     Active Substance: DULOXETINE
     Indication: Neuralgia
  27. ESCITALOPRAM [Concomitant]
     Active Substance: ESCITALOPRAM OXALATE
     Indication: Depression
     Dosage: UNK
     Dates: start: 20221201
  28. ESCITALOPRAM [Concomitant]
     Active Substance: ESCITALOPRAM OXALATE
     Indication: Generalised anxiety disorder
  29. FERROUS SULFATE [Concomitant]
     Active Substance: FERROUS SULFATE
     Indication: Iron deficiency anaemia
  30. FLUTICASONE [Concomitant]
     Active Substance: FLUTICASONE
     Indication: Rhinitis allergic
     Dosage: UNK
     Dates: start: 20220812
  31. FLUTICASONE [Concomitant]
     Active Substance: FLUTICASONE
     Indication: Asthma
  32. FLUZONE QUADRIVALENT NOS [Concomitant]
     Active Substance: INFLUENZA VIRUS VACCINE
     Indication: Influenza
  33. GAVILYTE G [Concomitant]
     Active Substance: POLYETHYLENE GLYCOL 3350\POTASSIUM CHLORIDE\SODIUM BICARBONATE\SODIUM CHLORIDE\SODIUM SULFATE
     Indication: Bowel preparation
  34. HUMULIN NOS [Concomitant]
     Active Substance: INSULIN HUMAN
     Indication: Diabetes mellitus
  35. INSULIN LISPRO [Concomitant]
     Active Substance: INSULIN LISPRO
     Indication: Diabetes mellitus
  36. JARDIANCE [Concomitant]
     Active Substance: EMPAGLIFLOZIN
     Indication: Type 2 diabetes mellitus
  37. KETOROLAC [Concomitant]
     Active Substance: KETOROLAC TROMETHAMINE
     Indication: Pain
  38. LAMOTRIGINE [Concomitant]
     Active Substance: LAMOTRIGINE
     Indication: Seizure
  39. LAMOTRIGINE [Concomitant]
     Active Substance: LAMOTRIGINE
     Indication: Bipolar disorder
  40. LEVEMIR [Concomitant]
     Active Substance: INSULIN DETEMIR
     Indication: Diabetes mellitus
  41. METFORMIN [Concomitant]
     Active Substance: METFORMIN HYDROCHLORIDE
     Indication: Type 2 diabetes mellitus
  42. METOPROLOL [Concomitant]
     Active Substance: METOPROLOL
     Indication: Hypertension
  43. OXYCODONE [Concomitant]
     Active Substance: OXYCODONE
     Indication: Pain
  44. PREDNISOLONE ACETATE [Concomitant]
     Active Substance: PREDNISOLONE ACETATE
     Indication: Eye inflammation
  45. PREDNISONE [Concomitant]
     Active Substance: PREDNISONE
     Indication: Autoimmune disorder
  46. PROGESTERONE [Concomitant]
     Active Substance: PROGESTERONE
     Indication: Hormone replacement therapy
  47. PROGESTERONE [Concomitant]
     Active Substance: PROGESTERONE
     Indication: Menstruation irregular
  48. PREVNAR [Concomitant]
     Active Substance: PNEUMOCOCCAL 7-VALENT CONJUGATE VACCINE (DIPHTHERIA CRM197 PROTEIN)
     Indication: Pneumococcal infection
  49. SPIRONOLACTONE [Concomitant]
     Active Substance: SPIRONOLACTONE
     Indication: Hypertension
  50. SUTAB [MAGNESIUM SULFATE;POTASSIUM CHLORIDE;S [Concomitant]
     Indication: Bowel preparation
  51. TRAMADOL [Concomitant]
     Active Substance: TRAMADOL
     Indication: Pain
  52. TOUJEO MAX [Concomitant]
     Active Substance: INSULIN GLARGINE
     Indication: Diabetes mellitus
  53. UBRELVY [Concomitant]
     Active Substance: UBROGEPANT
     Indication: Migraine
  54. VITAMIN D3 [Concomitant]
     Active Substance: CHOLECALCIFEROL
     Indication: Vitamin D deficiency

REACTIONS (6)
  - Impaired gastric emptying [Not Recovered/Not Resolved]
  - Nausea [Unknown]
  - Vomiting [Unknown]
  - Abdominal pain [Unknown]
  - Inappropriate schedule of product administration [Unknown]
  - Overdose [Unknown]

NARRATIVE: CASE EVENT DATE: 20220722
